FAERS Safety Report 15906531 (Version 1)
Quarter: 2019Q1

REPORT INFORMATION
  Report Type: Spontaneous
  Country: CN (occurrence: CN)
  Receive Date: 20190204
  Receipt Date: 20190204
  Transmission Date: 20190417
  Serious: Yes (Other)
  Sender: FDA-Public Use
  Company Number: CN-PFIZER INC-2019045316

PATIENT
  Age: 45 Year
  Sex: Female
  Weight: 62 kg

DRUGS (3)
  1. DOCETAXEL. [Suspect]
     Active Substance: DOCETAXEL
     Indication: BREAST CANCER
     Dosage: 120 MG, 1X/DAY
     Route: 041
     Dates: start: 20180922, end: 20180922
  2. CYCLOPHOSPHAMIDE. [Suspect]
     Active Substance: CYCLOPHOSPHAMIDE
     Indication: BREAST CANCER
     Dosage: 0.9 G, 1X/DAY
     Route: 041
     Dates: start: 20180921, end: 20180921
  3. EPIRUBICIN HCL [Suspect]
     Active Substance: EPIRUBICIN HYDROCHLORIDE
     Indication: BREAST CANCER
     Dosage: 120 MG, 1X/DAY
     Route: 041
     Dates: start: 20180921, end: 20180921

REACTIONS (1)
  - Cardiac disorder [Recovering/Resolving]

NARRATIVE: CASE EVENT DATE: 20181008
